FAERS Safety Report 4749488-7 (Version None)
Quarter: 2005Q3

REPORT INFORMATION
  Report Type: 
  Country: None (occurrence: None)
  Receive Date: 20050822
  Receipt Date: 20050729
  Transmission Date: 20060218
  Serious: Yes (Hospitalization)
  Sender: FDA-Public Use
  Company Number: 2005SE04411

PATIENT
  Age: 25656 Day
  Sex: Female

DRUGS (5)
  1. BLOPRESS [Suspect]
     Indication: HYPERTENSION
     Route: 048
     Dates: start: 20021106
  2. LIPITOR [Concomitant]
     Indication: HYPERLIPIDAEMIA
     Route: 048
  3. ARTIST [Concomitant]
     Indication: HYPERTENSION
     Route: 048
     Dates: start: 20021217
  4. CARDENALIN [Concomitant]
     Indication: HYPERTENSION
     Route: 048
     Dates: start: 20021118, end: 20021217
  5. CARDENALIN [Concomitant]
     Route: 048
     Dates: start: 20040724

REACTIONS (3)
  - DUODENAL ULCER [None]
  - HYPOGLYCAEMIA [None]
  - MALAISE [None]
